FAERS Safety Report 7393051-9 (Version None)
Quarter: 2011Q2

REPORT INFORMATION
  Report Type: 
  Country: None (occurrence: None)
  Receive Date: 20110404
  Receipt Date: 20110322
  Transmission Date: 20111010
  Serious: Yes (Other)
  Sender: FDA-Public Use
  Company Number: BE-WATSON-2011-04079

PATIENT
  Age: 43 Year
  Sex: Male

DRUGS (2)
  1. ALCOHOL                            /00002101/ [Suspect]
     Indication: ALCOHOLISM
     Dosage: UNK
  2. DISULFIRAM [Suspect]
     Indication: ALCOHOLISM
     Dosage: 1.2 G, DAILY

REACTIONS (2)
  - POSTERIOR REVERSIBLE ENCEPHALOPATHY SYNDROME [None]
  - ALCOHOL INTOLERANCE [None]
